FAERS Safety Report 11486291 (Version 3)
Quarter: 2016Q1

REPORT INFORMATION
  Report Type: Spontaneous
  Country: US (occurrence: US)
  Receive Date: 20150910
  Receipt Date: 20160223
  Transmission Date: 20160525
  Serious: Yes (Other)
  Sender: FDA-Public Use
  Company Number: US-UCBSA-2015028441

PATIENT
  Age: 28 Year
  Sex: Female

DRUGS (1)
  1. CIMZIA [Suspect]
     Active Substance: CERTOLIZUMAB PEGOL
     Indication: RHEUMATOID ARTHRITIS
     Dosage: 400 MG, MONTHLY (QM)
     Dates: start: 201412, end: 201503

REACTIONS (3)
  - Mast cell activation syndrome [Not Recovered/Not Resolved]
  - White blood cell count increased [Recovered/Resolved]
  - Ear pain [Recovered/Resolved]

NARRATIVE: CASE EVENT DATE: 201503
